FAERS Safety Report 6937479-7 (Version None)
Quarter: 2010Q3

REPORT INFORMATION
  Report Type: 
  Country: None (occurrence: None)
  Receive Date: 20100823
  Receipt Date: 20100815
  Transmission Date: 20110219
  Serious: Yes (Hospitalization, Other)
  Sender: FDA-Public Use
  Company Number: US-AMGEN-QUU420644

PATIENT
  Sex: Female
  Weight: 78.1 kg

DRUGS (8)
  1. NPLATE [Suspect]
     Indication: IDIOPATHIC THROMBOCYTOPENIC PURPURA
     Route: 058
     Dates: start: 20090929, end: 20100406
  2. CORTICOSTEROIDS [Concomitant]
     Dates: start: 20070301
  3. IMMU-G [Concomitant]
     Route: 042
     Dates: start: 20080401
  4. PERCOCET [Concomitant]
     Route: 048
     Dates: start: 20100401
  5. PROMETHAZINE [Concomitant]
     Route: 054
  6. NORMAL SALINE [Concomitant]
  7. HYDROMORPHONE [Concomitant]
  8. ONDANSETRON [Concomitant]

REACTIONS (9)
  - ABDOMINAL PAIN UPPER [None]
  - CHEST PAIN [None]
  - HEADACHE [None]
  - HYPERCOAGULATION [None]
  - INTRACRANIAL VENOUS SINUS THROMBOSIS [None]
  - NAUSEA [None]
  - SUBARACHNOID HAEMORRHAGE [None]
  - UPPER RESPIRATORY TRACT INFECTION [None]
  - VOMITING [None]
